FAERS Safety Report 6194223-1 (Version None)
Quarter: 2009Q2

REPORT INFORMATION
  Report Type: 
  Country: None (occurrence: None)
  Receive Date: 20090515
  Receipt Date: 20090515
  Transmission Date: 20091009
  Serious: No
  Sender: FDA-Public Use
  Company Number: None

PATIENT

DRUGS (1)
  1. SULFASALAZINE [Suspect]
     Dosage: 2 TABLETS 3 TIMES A DAY

REACTIONS (5)
  - ALOPECIA [None]
  - APPARENT DEATH [None]
  - PERIORBITAL DISORDER [None]
  - STEVENS-JOHNSON SYNDROME [None]
  - SWELLING [None]
